FAERS Safety Report 4628783-6 (Version None)
Quarter: 2005Q2

REPORT INFORMATION
  Report Type: 
  Country: None (occurrence: None)
  Receive Date: 20050406
  Receipt Date: 20050324
  Transmission Date: 20051028
  Serious: Yes (Life-Threatening, Hospitalization)
  Sender: FDA-Public Use
  Company Number: 2005AP00139

PATIENT
  Age: 62 Year
  Sex: Female
  Weight: 47 kg

DRUGS (7)
  1. OMEPRAL [Suspect]
     Indication: REFLUX OESOPHAGITIS
     Dosage: 20 MG DAILY PO
     Route: 048
     Dates: start: 20040729, end: 20050105
  2. GASMOTIN [Suspect]
     Indication: REFLUX OESOPHAGITIS
     Dosage: 15 MG DAILY PO
     Route: 048
     Dates: start: 20040729, end: 20050105
  3. DEPAS [Suspect]
     Indication: ANXIETY
     Dosage: 0.5 MG DAILY PO
     Route: 048
     Dates: start: 20040729, end: 20050105
  4. FERROMIA [Suspect]
     Indication: ANAEMIA
     Dosage: 100 MG DAILY PO
     Route: 048
     Dates: start: 20040802, end: 20050105
  5. MINOPHAGEN C [Concomitant]
  6. URSO 250 [Concomitant]
  7. KAKKON [Concomitant]

REACTIONS (16)
  - ASCITES [None]
  - BLOOD ALBUMIN DECREASED [None]
  - CHOLECYSTITIS [None]
  - GALLBLADDER OEDEMA [None]
  - HEPATIC ATROPHY [None]
  - HEPATIC ENCEPHALOPATHY [None]
  - HEPATIC FIBROSIS [None]
  - HEPATITIS FULMINANT [None]
  - HEPATOCELLULAR DAMAGE [None]
  - JAUNDICE [None]
  - LIVER DISORDER [None]
  - LUNG DISORDER [None]
  - PANCREATITIS ACUTE [None]
  - PROTHROMBIN TIME SHORTENED [None]
  - SPEECH DISORDER [None]
  - TREMOR [None]
